FAERS Safety Report 8189327-8 (Version None)
Quarter: 2012Q1

REPORT INFORMATION
  Report Type: 
  Country: None (occurrence: None)
  Receive Date: 20120307
  Receipt Date: 20120301
  Transmission Date: 20120608
  Serious: Yes (Death)
  Sender: FDA-Public Use
  Company Number: US-CELGENEUS-163-21880-12020893

PATIENT
  Sex: Female

DRUGS (1)
  1. REVLIMID [Suspect]
     Indication: AMYLOIDOSIS
     Dosage: 5 MILLIGRAM
     Route: 048
     Dates: start: 20100201, end: 20100101

REACTIONS (2)
  - AMYLOIDOSIS [None]
  - RENAL FAILURE [None]
